FAERS Safety Report 12199845 (Version 2)
Quarter: 2016Q3

REPORT INFORMATION
  Report Type: Report from Study
  Country: JP (occurrence: JP)
  Receive Date: 20160322
  Receipt Date: 20160712
  Transmission Date: 20161109
  Serious: Yes (Hospitalization, Other)
  Sender: FDA-Public Use
  Company Number: JP-ROCHE-1706840

PATIENT
  Age: 64 Year
  Sex: Female
  Weight: 50 kg

DRUGS (9)
  1. TRASTUZUMAB EMTANSINE [Suspect]
     Active Substance: ADO-TRASTUZUMAB EMTANSINE
     Route: 042
     Dates: start: 20150115, end: 20150409
  2. ZOLEDRONIC ACID [Concomitant]
     Active Substance: ZOLEDRONIC ACID
     Route: 065
     Dates: start: 20141006
  3. ADONA (JAPAN) [Concomitant]
     Indication: PROPHYLAXIS
     Dosage: ONCE, THE FRACTIONATION DOSE FREQUENCY WAS UNCERTAIN
     Route: 042
     Dates: start: 20150428, end: 20150430
  4. TRANSAMIN [Concomitant]
     Active Substance: TRANEXAMIC ACID
     Indication: PROPHYLAXIS
     Dosage: THE FRACTIONATION DOSE FREQUENCY WAS UNCERTAIN
     Route: 042
     Dates: start: 20150428, end: 20150430
  5. ZOLEDRONIC ACID [Concomitant]
     Active Substance: ZOLEDRONIC ACID
     Indication: BREAST CANCER
     Dosage: THE FRACTIONATION FREQUENCY WAS UNCERTAIN. DOSE INTERVAL UNCERTAINTY
     Route: 065
     Dates: start: 20141127, end: 20151001
  6. ZOLEDRONIC ACID [Concomitant]
     Active Substance: ZOLEDRONIC ACID
     Route: 065
     Dates: start: 20140130
  7. TRASTUZUMAB EMTANSINE [Suspect]
     Active Substance: ADO-TRASTUZUMAB EMTANSINE
     Indication: BREAST CANCER
     Route: 042
     Dates: start: 20141127, end: 20141218
  8. FERRUM (JAPAN) [Concomitant]
     Indication: PROPHYLAXIS
     Dosage: THE FRACTIONATION DOSE FREQUENCY WAS UNCERTAIN
     Route: 048
     Dates: start: 20150514, end: 20150730
  9. TRASTUZUMAB EMTANSINE [Suspect]
     Active Substance: ADO-TRASTUZUMAB EMTANSINE
     Route: 042
     Dates: start: 20150514, end: 20150604

REACTIONS (4)
  - Epistaxis [Recovering/Resolving]
  - Tumour haemorrhage [Recovering/Resolving]
  - Platelet count decreased [Recovering/Resolving]
  - Thoracic haemorrhage [Recovering/Resolving]

NARRATIVE: CASE EVENT DATE: 20150416
